FAERS Safety Report 17076436 (Version 1)
Quarter: 2019Q4

REPORT INFORMATION
  Report Type: Spontaneous
  Country: US (occurrence: US)
  Receive Date: 20191029
  Receipt Date: 20191029
  Transmission Date: 20200122
  Serious: Yes (Life-Threatening, Hospitalization)
  Sender: FDA-Public Use
  Company Number: None

PATIENT
  Age: 73 Year
  Sex: Male
  Weight: 89.81 kg

DRUGS (14)
  1. DILITIAZEM [Concomitant]
     Active Substance: DILTIAZEM
  2. ELIQUIS [Concomitant]
     Active Substance: APIXABAN
  3. SAW PALMETTO [Concomitant]
     Active Substance: HERBALS\SAW PALMETTO
  4. VITAMIN C WITH ROSE HIPS [Concomitant]
  5. VITAMIN D [Concomitant]
     Active Substance: VITAMIN D NOS
  6. PROPAFENONE HCL [Suspect]
     Active Substance: PROPAFENONE HYDROCHLORIDE
     Indication: ATRIAL FIBRILLATION
     Dosage: ?          QUANTITY:325 MG MILLIGRAM(S);?
     Route: 048
     Dates: start: 20180909, end: 20180919
  7. TADALAFIL. [Concomitant]
     Active Substance: TADALAFIL
  8. PREVACID [Concomitant]
     Active Substance: LANSOPRAZOLE
  9. MAXALT [Concomitant]
     Active Substance: RIZATRIPTAN BENZOATE
  10. PACEMAKER [Concomitant]
  11. CENTRUM SILVER [Concomitant]
     Active Substance: MINERALS\VITAMINS
  12. MIRALAX [Concomitant]
     Active Substance: POLYETHYLENE GLYCOL 3350
  13. BENEFIBER [Concomitant]
     Active Substance: STARCH, WHEAT
  14. RYTHMOL [Concomitant]
     Active Substance: PROPAFENONE HYDROCHLORIDE

REACTIONS (2)
  - Product substitution issue [None]
  - Atrial fibrillation [None]

NARRATIVE: CASE EVENT DATE: 20180919
